FAERS Safety Report 5389361-7 (Version None)
Quarter: 2007Q3

REPORT INFORMATION
  Report Type: 
  Country: None (occurrence: None)
  Receive Date: 20070713
  Receipt Date: 20070713
  Transmission Date: 20080115
  Serious: Yes (Other)
  Sender: FDA-Public Use
  Company Number: None

PATIENT
  Sex: Male
  Weight: 108.8633 kg

DRUGS (1)
  1. VYTORIN [Suspect]
     Indication: BLOOD CHOLESTEROL
     Dosage: DAILY PO
     Route: 048
     Dates: start: 20060301, end: 20070501

REACTIONS (5)
  - ABASIA [None]
  - ARTHRALGIA [None]
  - GAIT DISTURBANCE [None]
  - GOUT [None]
  - PAIN IN EXTREMITY [None]
